FAERS Safety Report 4575054-2 (Version None)
Quarter: 2005Q1

REPORT INFORMATION
  Report Type: 
  Country: None (occurrence: None)
  Receive Date: 20050208
  Receipt Date: 20041214
  Transmission Date: 20050727
  Serious: Yes (Other)
  Sender: FDA-Public Use
  Company Number: US-GLAXOSMITHKLINE-A0537276A

PATIENT
  Sex: Male

DRUGS (1)
  1. VALTREX [Suspect]
     Indication: HERPES SIMPLEX
     Route: 048
     Dates: start: 19990101

REACTIONS (6)
  - BONE DISORDER [None]
  - IDIOPATHIC THROMBOCYTOPENIC PURPURA [None]
  - OSTEONECROSIS [None]
  - PLATELET COUNT DECREASED [None]
  - SPLENECTOMY [None]
  - TOOTH LOSS [None]
